FAERS Safety Report 24879024 (Version 1)
Quarter: 2025Q1

REPORT INFORMATION
  Report Type: Spontaneous
  Country: US (occurrence: US)
  Receive Date: 20250123
  Receipt Date: 20250123
  Transmission Date: 20250409
  Serious: No
  Sender: CATALYST PHARMA
  Company Number: US-CATALYST PHARMACEUTICALS, INC-US-CATA-24-00306

PATIENT
  Age: 70 Year
  Sex: Female
  Weight: 95.238 kg

DRUGS (27)
  1. FIRDAPSE [Suspect]
     Active Substance: AMIFAMPRIDINE PHOSPHATE
     Indication: Congenital myasthenic syndrome
     Dosage: .5 TABLET BY MOUTH THREE TIME A DAY FOR FOUR DAYS, INCREASE BY 5 MG EVERY FOUR DAYS IF NEEDED UP TO
     Route: 048
     Dates: start: 20201020
  2. FIRDAPSE [Suspect]
     Active Substance: AMIFAMPRIDINE PHOSPHATE
     Dosage: 1.5 TABLETS IN THE MORNING, 1.5 TABLETS AFTERNOON 1 TABLET AT BEDTIME
     Route: 048
     Dates: start: 20210223
  3. MESTINON [Concomitant]
     Active Substance: PYRIDOSTIGMINE BROMIDE
     Indication: Myasthenic syndrome
     Dosage: 60 MG THREE TIMES A DAY
     Route: 065
  4. LOSARTAN POTASSIUM [Concomitant]
     Active Substance: LOSARTAN POTASSIUM
     Indication: Hypertension
     Dosage: 25 MG DAILY
     Route: 065
  5. OMEPRAZOLE [Concomitant]
     Active Substance: OMEPRAZOLE
     Indication: Gastrooesophageal reflux disease
     Dosage: 20 MG TWICE A DAY
     Route: 065
  6. CITALOPRAM HYDROBROMIDE [Concomitant]
     Active Substance: CITALOPRAM HYDROBROMIDE
     Indication: Depression
     Dosage: 10 MG AT BEDTIME
     Route: 065
  7. ZINC GLUCONATE [Concomitant]
     Active Substance: ZINC GLUCONATE
     Indication: Mineral deficiency
     Dosage: 50 MG DAILY
     Route: 065
  8. CALCIUM\CHOLECALCIFEROL [Concomitant]
     Active Substance: CALCIUM\CHOLECALCIFEROL
     Indication: Hypovitaminosis
     Dosage: 600-800MG TWICE A DAY
     Route: 065
  9. CALCIUM\CHOLECALCIFEROL [Concomitant]
     Active Substance: CALCIUM\CHOLECALCIFEROL
     Indication: Mineral deficiency
  10. ALBUTEROL SULFATE ER [Concomitant]
     Active Substance: ALBUTEROL SULFATE
     Indication: Chronic obstructive pulmonary disease
     Dosage: 4 MG DAILY
     Route: 065
  11. SYMBICORT [Concomitant]
     Active Substance: BUDESONIDE\FORMOTEROL FUMARATE DIHYDRATE
     Indication: Chronic obstructive pulmonary disease
     Dosage: 80-4.5 MG 2 PUFFS TWICE A DAY
     Route: 055
  12. ALBUTEROL\IPRATROPIUM [Concomitant]
     Active Substance: ALBUTEROL\IPRATROPIUM
     Indication: Chronic obstructive pulmonary disease
     Dosage: 1 AMP DAILY
     Route: 065
  13. TYLENOL EXTRA STRENGTH [Concomitant]
     Active Substance: ACETAMINOPHEN
     Indication: Pain
     Dosage: 500 MG 3 TIMES A DAY
     Route: 065
  14. ALBUTEROL SULFATE [Concomitant]
     Active Substance: ALBUTEROL SULFATE
     Indication: Chronic obstructive pulmonary disease
     Route: 055
  15. CALCITRIOL [Concomitant]
     Active Substance: CALCITRIOL
     Indication: Psoriasis
     Dosage: 3 MCG THREE TIMES A DAY
     Route: 065
  16. OMEGA 3 [Concomitant]
     Active Substance: CAPSAICIN
     Indication: Cardiac disorder
     Dosage: ONE DOSE DAILY
     Route: 065
  17. PYRIDOSTIGMINE BROMIDE [Concomitant]
     Active Substance: PYRIDOSTIGMINE BROMIDE
     Indication: Myasthenic syndrome
     Dosage: 90 MG FOUR TIMES A DAY
     Route: 065
  18. SIMVASTATIN [Concomitant]
     Active Substance: SIMVASTATIN
     Indication: Hypercholesterolaemia
     Dosage: 40 MG DAILY
     Route: 065
  19. HYDROCHLOROTHIAZIDE\TRIAMTERENE [Concomitant]
     Active Substance: HYDROCHLOROTHIAZIDE\TRIAMTERENE
     Indication: Hypertension
     Dosage: 37.5-25 MG DAILY
     Route: 065
  20. MUCOUS RELIEF [Concomitant]
     Indication: Nasal congestion
     Dosage: 600 MG TWICE A DAY
     Route: 065
  21. VALSARTAN [Concomitant]
     Active Substance: VALSARTAN
     Indication: Hypertension
     Dosage: 160 MG DAILY
     Route: 065
  22. GO-LOW WEIGHT LOSS [Concomitant]
     Indication: Weight decreased
     Dosage: 1 A DAY
     Route: 065
  23. LATANOPROST [Concomitant]
     Active Substance: LATANOPROST
     Indication: Macular degeneration
     Dosage: 1 DROP DAILY
     Route: 047
  24. ASPIRIN [Concomitant]
     Active Substance: ASPIRIN
     Indication: Cardiac disorder
     Dosage: 81 MG DAILY
     Route: 065
  25. METOPROLOL TARTRATE [Concomitant]
     Active Substance: METOPROLOL TARTRATE
     Indication: Hypertension
     Dosage: 25 MG TWICE A DAY
     Route: 065
  26. METOPROLOL TARTRATE [Concomitant]
     Active Substance: METOPROLOL TARTRATE
     Indication: Atrial fibrillation
  27. ARNUITY ELLIPTA [Concomitant]
     Active Substance: FLUTICASONE FUROATE
     Indication: Asthma
     Dosage: 200 MCG 1 PUFF DAILY
     Route: 055

REACTIONS (4)
  - Muscle disorder [Not Recovered/Not Resolved]
  - Gait disturbance [Not Recovered/Not Resolved]
  - Condition aggravated [Not Recovered/Not Resolved]
  - Off label use [Unknown]

NARRATIVE: CASE EVENT DATE: 20201020
